FAERS Safety Report 16428215 (Version 1)
Quarter: 2019Q2

REPORT INFORMATION
  Report Type: Report from Study
  Country: US (occurrence: US)
  Receive Date: 20190613
  Receipt Date: 20190613
  Transmission Date: 20190711
  Serious: Yes (Death)
  Sender: FDA-Public Use
  Company Number: US-EXELIXIS-CABO-19021829

PATIENT
  Sex: Male
  Weight: 77.98 kg

DRUGS (17)
  1. CABOMETYX [Suspect]
     Active Substance: CABOZANTINIB S-MALATE
     Indication: RENAL CELL CARCINOMA
     Dosage: 40 MG, QD
     Route: 048
     Dates: start: 20181120
  2. TAMSULOSIN [Concomitant]
     Active Substance: TAMSULOSIN
  3. MARINOL [Concomitant]
     Active Substance: DRONABINOL
  4. MAGNESIUM [Concomitant]
     Active Substance: MAGNESIUM
  5. METOPROLOL TARTRATE. [Concomitant]
     Active Substance: METOPROLOL TARTRATE
  6. ZOMETA [Concomitant]
     Active Substance: ZOLEDRONIC ACID
  7. PRAVASTATIN. [Concomitant]
     Active Substance: PRAVASTATIN
  8. OMEPRAZOLE. [Concomitant]
     Active Substance: OMEPRAZOLE
  9. AZITHROMYCIN ANHYDROUS. [Concomitant]
     Active Substance: AZITHROMYCIN ANHYDROUS
  10. PREDNISONE. [Concomitant]
     Active Substance: PREDNISONE
  11. ZINC. [Concomitant]
     Active Substance: ZINC
  12. OXYCODONE [Concomitant]
     Active Substance: OXYCODONE
  13. POTASSIUM [Concomitant]
     Active Substance: POTASSIUM
  14. HEPARIN FLUSH [Concomitant]
     Active Substance: HEPARIN SODIUM
  15. TYLENOL [Concomitant]
     Active Substance: ACETAMINOPHEN
  16. LEVOTHYROXINE. [Concomitant]
     Active Substance: LEVOTHYROXINE
  17. CLOPIDOGREL [Concomitant]
     Active Substance: CLOPIDOGREL BISULFATE

REACTIONS (1)
  - Death [Fatal]
